FAERS Safety Report 4677117-X (Version None)
Quarter: 2005Q2

REPORT INFORMATION
  Report Type: 
  Country: None (occurrence: None)
  Receive Date: 20050526
  Receipt Date: 20050526
  Transmission Date: 20051028
  Serious: Yes (Life-Threatening, Hospitalization)
  Sender: FDA-Public Use
  Company Number: None

PATIENT
  Sex: Male
  Weight: 81.6475 kg

DRUGS (1)
  1. ALLEGRA D 24 HOUR [Suspect]
     Indication: SINUS DISORDER
     Dosage: 1 TABLET    EVERY 12 HRS    ORAL
     Route: 048
     Dates: start: 20050425, end: 20050427

REACTIONS (10)
  - BLOOD PRESSURE IMMEASURABLE [None]
  - CHEST DISCOMFORT [None]
  - DIZZINESS [None]
  - DYSPNOEA [None]
  - HEADACHE [None]
  - HEART RATE INCREASED [None]
  - NAUSEA [None]
  - PULSE ABSENT [None]
  - SENSATION OF HEAVINESS [None]
  - VENTRICULAR EXTRASYSTOLES [None]
